FAERS Safety Report 9956547 (Version 1)
Quarter: 2014Q1

REPORT INFORMATION
  Report Type: Report from Study
  Country: US (occurrence: US)
  Receive Date: 20140304
  Receipt Date: 20140304
  Transmission Date: 20141002
  Serious: No
  Sender: FDA-Public Use
  Company Number: US-ABBVIE-13P-163-1092889-00

PATIENT
  Age: 48 Year
  Sex: Female

DRUGS (7)
  1. HUMIRA [Suspect]
     Indication: ANKYLOSING SPONDYLITIS
     Route: 058
     Dates: start: 20130320
  2. INDOMETHACIN [Concomitant]
     Indication: ANTIINFLAMMATORY THERAPY
  3. LEXAPRO [Concomitant]
     Indication: ANXIETY
  4. BIOTIN [Concomitant]
     Indication: ANXIETY
  5. SAVELLA [Concomitant]
     Indication: FIBROMYALGIA
  6. VYVANSE [Concomitant]
     Indication: ATTENTION DEFICIT/HYPERACTIVITY DISORDER
  7. VITAMIN SUPPLEMENT NOT SPECIFIED [Concomitant]
     Indication: VITAMIN SUPPLEMENTATION

REACTIONS (4)
  - Rhinorrhoea [Not Recovered/Not Resolved]
  - Abdominal distension [Not Recovered/Not Resolved]
  - Swelling face [Not Recovered/Not Resolved]
  - Alopecia [Not Recovered/Not Resolved]
